FAERS Safety Report 9741022 (Version 1)
Quarter: 2013Q4

REPORT INFORMATION
  Report Type: Spontaneous
  Country: GB (occurrence: GB)
  Receive Date: 20131209
  Receipt Date: 20131209
  Transmission Date: 20140711
  Serious: Yes (Other)
  Sender: FDA-Public Use
  Company Number: GB-BAUSCH-BL-2013-006773

PATIENT
  Age: 68 Year
  Sex: Female

DRUGS (2)
  1. CHLORAMPHENICOL [Suspect]
     Indication: KERATOPATHY
     Route: 047
  2. TIMOLOL MALEATE [Interacting]
     Indication: POSTOPERATIVE CARE
     Route: 065

REACTIONS (6)
  - Conjunctival hyperaemia [Unknown]
  - Corneal neovascularisation [Unknown]
  - Corneal oedema [Not Recovered/Not Resolved]
  - Corneal epithelium defect [Recovering/Resolving]
  - Corneal deposits [Unknown]
  - Drug interaction [Unknown]
